FAERS Safety Report 10342866 (Version 3)
Quarter: 2014Q4

REPORT INFORMATION
  Report Type: Report from Study
  Country: BE (occurrence: BE)
  Receive Date: 20140725
  Receipt Date: 20141015
  Transmission Date: 20150528
  Serious: Yes (Hospitalization)
  Sender: FDA-Public Use
  Company Number: BE-ASTRAZENECA-2014SE52702

PATIENT
  Age: 30476 Day
  Sex: Female

DRUGS (7)
  1. COVERSYL [Concomitant]
     Active Substance: PERINDOPRIL
     Indication: CORONARY ARTERY DISEASE
     Route: 048
     Dates: end: 20140705
  2. ASA [Concomitant]
     Active Substance: ASPIRIN
     Route: 048
     Dates: end: 20140705
  3. SERETIDE [Concomitant]
     Active Substance: FLUTICASONE FUROATE\SALMETEROL XINAFOATE
     Indication: ASTHMA
     Route: 055
  4. ASA [Concomitant]
     Active Substance: ASPIRIN
     Route: 048
     Dates: start: 20141007
  5. AZD6140 [Suspect]
     Active Substance: TICAGRELOR
     Indication: CORONARY ARTERY DISEASE
     Route: 048
     Dates: start: 20120425, end: 20140705
  6. BISOPROLOL [Concomitant]
     Active Substance: BISOPROLOL
     Indication: CORONARY ARTERY DISEASE
     Route: 048
     Dates: end: 20140510
  7. ATORVASTATIN [Concomitant]
     Active Substance: ATORVASTATIN
     Indication: HYPERCHOLESTEROLAEMIA
     Route: 048
     Dates: end: 20140510

REACTIONS (1)
  - Chronic hepatitis [Not Recovered/Not Resolved]

NARRATIVE: CASE EVENT DATE: 20140510
